FAERS Safety Report 7722430-2 (Version None)
Quarter: 2011Q3

REPORT INFORMATION
  Report Type: 
  Country: None (occurrence: None)
  Receive Date: 20110831
  Receipt Date: 20110826
  Transmission Date: 20111222
  Serious: Yes (Hospitalization)
  Sender: FDA-Public Use
  Company Number: US-PFIZER INC-2006150595

PATIENT
  Sex: Male
  Weight: 81.633 kg

DRUGS (5)
  1. TYLENOL-500 [Concomitant]
     Route: 048
     Dates: start: 20061115
  2. FOLIC ACID [Concomitant]
     Route: 048
     Dates: start: 19950601
  3. FERROUS SULFATE TAB [Concomitant]
     Route: 048
     Dates: start: 19950601
  4. SUNITINIB MALATE [Suspect]
     Indication: GASTROINTESTINAL STROMAL TUMOUR
     Dosage: 50 MG, 1X/DAY, 4 WKS ON, 2 WKS OFF
     Route: 048
     Dates: start: 20060202
  5. METFORMIN [Concomitant]
     Route: 048
     Dates: start: 20021206

REACTIONS (2)
  - PYREXIA [None]
  - LIVER ABSCESS [None]
